FAERS Safety Report 6691294-0 (Version None)
Quarter: 2010Q2

REPORT INFORMATION
  Report Type: 
  Country: None (occurrence: None)
  Receive Date: 20100422
  Receipt Date: 20100408
  Transmission Date: 20101027
  Serious: Yes (Hospitalization)
  Sender: FDA-Public Use
  Company Number: FR-JNJFOC-20100207791

PATIENT
  Sex: Male
  Weight: 33.4 kg

DRUGS (3)
  1. RISPERDAL [Suspect]
     Indication: ABNORMAL BEHAVIOUR
     Route: 048
  2. RISPERDAL [Suspect]
     Route: 048
  3. RISPERDAL [Suspect]
     Route: 048

REACTIONS (8)
  - ABDOMINAL DISTENSION [None]
  - ABDOMINAL PAIN [None]
  - CONSTIPATION [None]
  - GASTROENTERITIS [None]
  - GASTROINTESTINAL DISORDER [None]
  - PERIPHERAL COLDNESS [None]
  - VOMITING [None]
  - WEIGHT INCREASED [None]
